FAERS Safety Report 26104616 (Version 2)
Quarter: 2025Q4

REPORT INFORMATION
  Report Type: Spontaneous
  Country: US (occurrence: US)
  Receive Date: 20251130
  Receipt Date: 20251201
  Transmission Date: 20260118
  Serious: Yes (Life-Threatening, Hospitalization)
  Sender: JOHNSON AND JOHNSON
  Company Number: US-MLMSERVICE-20251119-PI718741-00285-1

PATIENT
  Age: 42 Year
  Sex: Male

DRUGS (10)
  1. RISPERIDONE [Suspect]
     Active Substance: RISPERIDONE
     Indication: Antipsychotic therapy
     Route: 048
  2. RISPERIDONE [Suspect]
     Active Substance: RISPERIDONE
  3. RISPERIDONE [Suspect]
     Active Substance: RISPERIDONE
  4. RISPERIDONE [Suspect]
     Active Substance: RISPERIDONE
  5. RISPERIDONE [Suspect]
     Active Substance: RISPERIDONE
  6. RISPERIDONE [Suspect]
     Active Substance: RISPERIDONE
  7. PALIPERIDONE [Suspect]
     Active Substance: PALIPERIDONE
     Indication: Antipsychotic therapy
     Dosage: LONG-ACTING INJECTABLE
     Route: 065
  8. PALIPERIDONE [Suspect]
     Active Substance: PALIPERIDONE
  9. PALIPERIDONE [Suspect]
     Active Substance: PALIPERIDONE
  10. PAROXETINE [Suspect]
     Active Substance: PAROXETINE
     Dosage: STABLE DOSE

REACTIONS (2)
  - Serotonin syndrome [Recovering/Resolving]
  - Paradoxical drug reaction [Recovering/Resolving]
